FAERS Safety Report 8523547-5 (Version None)
Quarter: 2012Q3

REPORT INFORMATION
  Report Type: 
  Country: None (occurrence: None)
  Receive Date: 20120720
  Receipt Date: 20120711
  Transmission Date: 20120928
  Serious: No
  Sender: FDA-Public Use
  Company Number: US-BAYER-2012-070578

PATIENT

DRUGS (2)
  1. ALEVE (CAPLET) [Suspect]
     Indication: PAIN
     Dosage: 3 DF, UNK
     Route: 048
  2. ALEVE (CAPLET) [Suspect]
     Dosage: 2 DF, UNK
     Route: 048

REACTIONS (1)
  - PAIN [None]
